FAERS Safety Report 18014036 (Version 1)
Quarter: 2020Q3

REPORT INFORMATION
  Report Type: Spontaneous
  Country: US (occurrence: US)
  Receive Date: 20200712
  Receipt Date: 20200712
  Transmission Date: 20201103
  Serious: Yes (Other)
  Sender: FDA-Public Use
  Company Number: None

PATIENT
  Age: 53 Year
  Sex: Female
  Weight: 65.25 kg

DRUGS (5)
  1. ZOLOFT [Concomitant]
     Active Substance: SERTRALINE HYDROCHLORIDE
  2. ATIVAN [Suspect]
     Active Substance: LORAZEPAM
     Indication: ANXIETY
     Dosage: ?          QUANTITY:1 TABLET(S);?
     Route: 048
     Dates: start: 20190101
  3. REMERON [Concomitant]
     Active Substance: MIRTAZAPINE
  4. ESTROGEN [Concomitant]
     Active Substance: ESTROGENS
  5. ATIVAN [Concomitant]
     Active Substance: LORAZEPAM

REACTIONS (7)
  - Overdose [None]
  - Depression [None]
  - Anxiety [None]
  - Loss of personal independence in daily activities [None]
  - Cognitive disorder [None]
  - Drug withdrawal syndrome [None]
  - Paradoxical drug reaction [None]

NARRATIVE: CASE EVENT DATE: 20190101
